FAERS Safety Report 6805022-9 (Version None)
Quarter: 2010Q2

REPORT INFORMATION
  Report Type: 
  Country: None (occurrence: None)
  Receive Date: 20100628
  Receipt Date: 20070807
  Transmission Date: 20101027
  Serious: No
  Sender: FDA-Public Use
  Company Number: US-PFIZER INC-2007065359

PATIENT
  Sex: Female
  Weight: 68.04 kg

DRUGS (5)
  1. XALATAN [Suspect]
     Indication: GLAUCOMA
     Dates: start: 20070601, end: 20070730
  2. LIPITOR [Suspect]
     Indication: BLOOD CHOLESTEROL INCREASED
     Dates: start: 20040101
  3. PREVACID [Concomitant]
     Indication: SLEEP DISORDER
  4. DIAZIDE [Concomitant]
     Indication: SLEEP DISORDER
  5. AMBIEN [Concomitant]
     Indication: SLEEP DISORDER

REACTIONS (2)
  - BLOOD CHOLESTEROL INCREASED [None]
  - HEADACHE [None]
